FAERS Safety Report 5654701-8 (Version None)
Quarter: 2008Q1

REPORT INFORMATION
  Report Type: 
  Country: None (occurrence: None)
  Receive Date: 20080307
  Receipt Date: 20080225
  Transmission Date: 20080703
  Serious: Yes (Other)
  Sender: FDA-Public Use
  Company Number: US-JNJFOC-20080206930

PATIENT
  Sex: Female
  Weight: 78.02 kg

DRUGS (11)
  1. FENTANYL [Suspect]
     Indication: NECK PAIN
     Route: 062
  2. DURAGESIC-100 [Suspect]
     Indication: NECK PAIN
     Route: 062
  3. DIOVAN [Concomitant]
     Indication: HYPERTENSION
     Route: 048
  4. ADALAT [Concomitant]
     Indication: HYPERTENSION
     Route: 048
  5. LYRICA [Concomitant]
     Indication: NEURALGIA
     Route: 048
  6. SYNTHROID [Concomitant]
     Indication: BASEDOW'S DISEASE
     Route: 048
  7. PROTONIX [Concomitant]
     Indication: GASTRIC DISORDER
     Route: 048
  8. CYMBALTA [Concomitant]
     Indication: NEURALGIA
     Route: 048
  9. CYMBALTA [Concomitant]
     Indication: DEPRESSION
     Route: 048
  10. TRAZODONE HCL [Concomitant]
     Indication: SLEEP DISORDER
     Route: 048
  11. KLONOPIN [Concomitant]
     Indication: ANXIETY
     Route: 048

REACTIONS (20)
  - BALANCE DISORDER [None]
  - BLOOD CHOLESTEROL INCREASED [None]
  - BLOOD TRIGLYCERIDES INCREASED [None]
  - CHEST PAIN [None]
  - DECREASED APPETITE [None]
  - DEVICE LEAKAGE [None]
  - DRUG DOSE OMISSION [None]
  - DRUG INEFFECTIVE [None]
  - DRUG WITHDRAWAL SYNDROME [None]
  - DYSPNOEA [None]
  - DYSURIA [None]
  - FALL [None]
  - HYPERSOMNIA [None]
  - INTERVERTEBRAL DISC DISORDER [None]
  - MALAISE [None]
  - MUSCULAR WEAKNESS [None]
  - NAUSEA [None]
  - TREMOR [None]
  - VOMITING [None]
  - WRONG TECHNIQUE IN DRUG USAGE PROCESS [None]
